FAERS Safety Report 5670838-1 (Version None)
Quarter: 2008Q1

REPORT INFORMATION
  Report Type: 
  Country: None (occurrence: None)
  Receive Date: 20080318
  Receipt Date: 20080307
  Transmission Date: 20080703
  Serious: Yes (Other)
  Sender: FDA-Public Use
  Company Number: AR-AVENTIS-200812192GDDC

PATIENT
  Age: 82 Year
  Sex: Female

DRUGS (5)
  1. ALLEGRA [Suspect]
     Dates: start: 20080101, end: 20080208
  2. ASPIRIN [Concomitant]
     Indication: PROPHYLAXIS
     Route: 048
     Dates: end: 20080208
  3. ASPIRIN [Concomitant]
  4. TRENTAL [Concomitant]
     Route: 048
     Dates: end: 20080208
  5. SERETIDE DISCUS [Concomitant]

REACTIONS (4)
  - AMNESIA [None]
  - DIZZINESS [None]
  - HALLUCINATION [None]
  - LOSS OF CONSCIOUSNESS [None]
